FAERS Safety Report 5006264-8 (Version None)
Quarter: 2006Q2

REPORT INFORMATION
  Report Type: 
  Country: None (occurrence: None)
  Receive Date: 20060516
  Receipt Date: 20060502
  Transmission Date: 20061013
  Serious: Yes (Hospitalization)
  Sender: FDA-Public Use
  Company Number: 2006RR-02230

PATIENT
  Age: 48 Year
  Sex: Female

DRUGS (4)
  1. FLUOXETINE [Suspect]
     Indication: DEPRESSION
     Dosage: 30 MG, QD
  2. CALCITRIOL [Concomitant]
  3. ALITIZIDE-SPIRONOLACTONE (SPIRONOLACTONE, ALTIZIDE) [Concomitant]
  4. OXYCODONE TABLET [Concomitant]

REACTIONS (7)
  - DEEP VEIN THROMBOSIS [None]
  - DUODENAL ULCER HAEMORRHAGE [None]
  - GASTROINTESTINAL ULCER HAEMORRHAGE [None]
  - HYPOXIA [None]
  - METABOLIC ACIDOSIS [None]
  - PULMONARY EMBOLISM [None]
  - PYREXIA [None]
